FAERS Safety Report 16119332 (Version 1)
Quarter: 2019Q1

REPORT INFORMATION
  Report Type: Spontaneous
  Country: IT (occurrence: IT)
  Receive Date: 20190326
  Receipt Date: 20190326
  Transmission Date: 20190418
  Serious: Yes (Hospitalization)
  Sender: FDA-Public Use
  Company Number: IT-ASTRAZENECA-2019SE43546

PATIENT
  Age: 78 Year
  Sex: Male

DRUGS (8)
  1. METOPROLOL. [Concomitant]
     Active Substance: METOPROLOL
  2. CARDIOASPIRIN [Suspect]
     Active Substance: ASPIRIN
     Indication: THROMBOSIS PROPHYLAXIS
     Route: 065
     Dates: start: 20180301, end: 20180726
  3. DOBETIN [Concomitant]
  4. FOLINA [Concomitant]
     Active Substance: FOLIC ACID
  5. LASIX [Concomitant]
     Active Substance: FUROSEMIDE
  6. BRILIQUE [Suspect]
     Active Substance: TICAGRELOR
     Indication: THROMBOSIS PROPHYLAXIS
     Route: 048
     Dates: start: 20180301, end: 20180727
  7. TORVAST [Concomitant]
     Active Substance: ATORVASTATIN
  8. PANTORC [Concomitant]
     Active Substance: PANTOPRAZOLE SODIUM

REACTIONS (2)
  - Anaemia [Unknown]
  - Haematuria [Unknown]

NARRATIVE: CASE EVENT DATE: 20180726
